FAERS Safety Report 15321290 (Version 1)
Quarter: 2018Q3

REPORT INFORMATION
  Report Type: Spontaneous
  Country: US (occurrence: US)
  Receive Date: 20180827
  Receipt Date: 20180827
  Transmission Date: 20181010
  Serious: No
  Sender: FDA-Public Use
  Company Number: US-SA-2018SA234365

PATIENT
  Sex: Male

DRUGS (23)
  1. ACETAMINOPHEN W/OXYCODONE [Concomitant]
     Active Substance: ACETAMINOPHEN\OXYCODONE HYDROCHLORIDE
  2. COLCHICINE. [Concomitant]
     Active Substance: COLCHICINE
  3. AMLODIPINE BESYLATE. [Concomitant]
     Active Substance: AMLODIPINE BESYLATE
  4. PANTOPRAZOLE [Concomitant]
     Active Substance: PANTOPRAZOLE
  5. DIPHENOXYLATE/ATROPINE [Concomitant]
     Active Substance: ATROPINE\DIPHENOXYLATE
  6. SPIRONOLACTONE. [Concomitant]
     Active Substance: SPIRONOLACTONE
  7. ALIROCUMAB PREFILLED PEN [Suspect]
     Active Substance: ALIROCUMAB
     Indication: HYPERLIPIDAEMIA
     Dosage: 75 MG, QOW
     Route: 058
  8. AZITHROMYCIN ANHYDROUS. [Concomitant]
     Active Substance: AZITHROMYCIN ANHYDROUS
  9. MELOXICAM. [Concomitant]
     Active Substance: MELOXICAM
  10. VITAMIN D2 [Concomitant]
     Active Substance: ERGOCALCIFEROL
  11. TRAMADOL. [Concomitant]
     Active Substance: TRAMADOL
  12. METOPROLOL TARTRATE. [Concomitant]
     Active Substance: METOPROLOL TARTRATE
  13. PRALUENT [Suspect]
     Active Substance: ALIROCUMAB
     Indication: HYPERLIPIDAEMIA
     Dosage: 75 MG, QOW
     Route: 058
  14. CIPROFLOXACIN. [Concomitant]
     Active Substance: CIPROFLOXACIN
  15. FENOFIBRATE. [Concomitant]
     Active Substance: FENOFIBRATE
  16. ONDANSETRON [Concomitant]
     Active Substance: ONDANSETRON
  17. PRASUGREL. [Concomitant]
     Active Substance: PRASUGREL
  18. RANEXA [Concomitant]
     Active Substance: RANOLAZINE
  19. EZETIMIBE. [Concomitant]
     Active Substance: EZETIMIBE
  20. METHOCARBAMOL. [Concomitant]
     Active Substance: METHOCARBAMOL
  21. ZOLPIDEM TARTRATE. [Concomitant]
     Active Substance: ZOLPIDEM TARTRATE
  22. MONTELUKAST [Concomitant]
     Active Substance: MONTELUKAST SODIUM
  23. CHLORTHALIDONE. [Concomitant]
     Active Substance: CHLORTHALIDONE

REACTIONS (1)
  - Muscle spasms [Unknown]
